FAERS Safety Report 16822469 (Version 3)
Quarter: 2019Q3

REPORT INFORMATION
  Report Type: Spontaneous
  Country: US (occurrence: US)
  Receive Date: 20190918
  Receipt Date: 20190920
  Transmission Date: 20191005
  Serious: No
  Sender: FDA-Public Use
  Company Number: US-PFIZER INC-2019400930

PATIENT
  Age: 60 Year
  Sex: Female

DRUGS (2)
  1. ADVIL COLD AND SINUS [Suspect]
     Active Substance: IBUPROFEN\PSEUDOEPHEDRINE HYDROCHLORIDE
     Indication: SINUS HEADACHE
     Dosage: 2 DF, DAILY (IBUPROFEN 200MG; PSEUDOEPHEDRINE HCL 30MG)
     Route: 048
     Dates: end: 20190912
  2. ADVIL COLD AND SINUS [Suspect]
     Active Substance: IBUPROFEN\PSEUDOEPHEDRINE HYDROCHLORIDE
     Dosage: UNK (200MG WITH 30MG PSEUDOEPHEDRINE, BY MOUTH, 2-3 TIMES PER DAY)
     Route: 048
     Dates: start: 20190909, end: 20190913

REACTIONS (1)
  - Drug ineffective [Unknown]

NARRATIVE: CASE EVENT DATE: 20190909
